FAERS Safety Report 8716009 (Version 3)
Quarter: 2012Q4

REPORT INFORMATION
  Report Type: 
  Country: JP (occurrence: JP)
  Receive Date: 20120809
  Receipt Date: 20121016
  Transmission Date: 20130627
  Serious: Yes (Other)
  Sender: FDA-Public Use
  Company Number: JP-ABBOTT-12P-087-0963474-00

PATIENT
  Age: 3 Year
  Sex: Female

DRUGS (7)
  1. VALPROIC ACID [Suspect]
     Indication: INFANTILE SPASMS
     Dosage: Daily
     Route: 065
  2. LAMOTRIGINE [Suspect]
     Indication: INFANTILE SPASMS
     Route: 065
  3. CLONAZEPAM [Suspect]
     Indication: INFANTILE SPASMS
     Dosage: Daily
     Route: 065
  4. TOPIRAMATE [Suspect]
     Indication: INFANTILE SPASMS
     Dosage: Daily
     Route: 065
  5. CORTICOTROPIN [Concomitant]
     Indication: PRODUCT USED FOR UNKNOWN INDICATION
  6. ZONISAMIDE [Concomitant]
     Indication: PRODUCT USED FOR UNKNOWN INDICATION
  7. VITAMIN B6 [Concomitant]
     Indication: PRODUCT USED FOR UNKNOWN INDICATION

REACTIONS (2)
  - Atonic seizures [Recovered/Resolved]
  - Drug ineffective [Unknown]
